FAERS Safety Report 8433124-2 (Version None)
Quarter: 2012Q2

REPORT INFORMATION
  Report Type: 
  Country: None (occurrence: None)
  Receive Date: 20120613
  Receipt Date: 20120608
  Transmission Date: 20120825
  Serious: Yes (Other)
  Sender: FDA-Public Use
  Company Number: AU-ROCHE-1077382

PATIENT
  Sex: Female

DRUGS (2)
  1. HERCEPTIN [Suspect]
     Indication: BREAST CANCER METASTATIC
  2. ABRAXANE [Concomitant]
     Indication: BREAST CANCER METASTATIC

REACTIONS (3)
  - DIZZINESS [None]
  - PULMONARY EMBOLISM [None]
  - BLOOD PRESSURE INCREASED [None]
